FAERS Safety Report 7313480-9 (Version None)
Quarter: 2011Q1

REPORT INFORMATION
  Report Type: 
  Country: None (occurrence: None)
  Receive Date: 20110225
  Receipt Date: 20110218
  Transmission Date: 20110831
  Serious: Yes (Hospitalization)
  Sender: FDA-Public Use
  Company Number: US-BAXTER-2011BH003414

PATIENT
  Age: 50 Year
  Sex: Female
  Weight: 61 kg

DRUGS (6)
  1. GAMMAGARD LIQUID [Suspect]
     Route: 042
     Dates: start: 20110121, end: 20110121
  2. RIFAMPIN [Concomitant]
  3. GAMMAGARD LIQUID [Suspect]
     Indication: HYPOGAMMAGLOBULINAEMIA
     Route: 042
     Dates: start: 20110121, end: 20110121
  4. XANAX [Concomitant]
  5. DOXYCYCLINE [Concomitant]
  6. SINGULAIR [Concomitant]

REACTIONS (1)
  - SUBCLAVIAN VEIN THROMBOSIS [None]
